FAERS Safety Report 4719513-8 (Version None)
Quarter: 2005Q3

REPORT INFORMATION
  Report Type: 
  Country: None (occurrence: None)
  Receive Date: 20050719
  Receipt Date: 20050719
  Transmission Date: 20060218
  Serious: Yes (Hospitalization)
  Sender: FDA-Public Use
  Company Number: None

PATIENT
  Age: 69 Year
  Sex: Male

DRUGS (17)
  1. HEPARIN [Suspect]
     Dosage: IV
     Route: 042
  2. EPTIFIBATIDE [Suspect]
     Dosage: 8.25MG/HR IV
     Route: 042
  3. ALPRAZOLAM [Concomitant]
  4. ASPIRIN ENTERIC COATED TAB, EC [Concomitant]
  5. CLOPIDOGREL BISULFATE [Concomitant]
  6. DILTIAZEM [Concomitant]
  7. GATIFLOXACIN [Concomitant]
  8. HEPARIN/SODIUM CHLORIDE INJ, SOLN IN HEPARIN [Concomitant]
  9. HUMULIN R [Concomitant]
  10. GLUCOSE [Concomitant]
  11. IPTRATROPIUM BR 0.02% INH SOLN [Concomitant]
  12. NITROGLYCERIN [Concomitant]
  13. SODIUM CHLORIDE [Concomitant]
  14. TERAZOSIN HCL [Concomitant]
  15. METHYLPREDNISOLONE SODIUM SUCCINATE [Concomitant]
  16. OMEPRAZOLE [Concomitant]
  17. SIMVASTATIN [Concomitant]

REACTIONS (3)
  - HAEMATOCRIT DECREASED [None]
  - HAEMATOMA [None]
  - POST PROCEDURAL COMPLICATION [None]
